FAERS Safety Report 24229699 (Version 1)
Quarter: 2024Q3

REPORT INFORMATION
  Report Type: Spontaneous
  Country: GB (occurrence: GB)
  Receive Date: 20240820
  Receipt Date: 20240820
  Transmission Date: 20241016
  Serious: Yes (Hospitalization)
  Sender: PFIZER
  Company Number: GB-ORESUND-24OPAJY0069P

PATIENT
  Age: 10 Month
  Sex: Male

DRUGS (5)
  1. METHOTREXATE SODIUM [Suspect]
     Active Substance: METHOTREXATE SODIUM
     Indication: Chemotherapy
     Dosage: UNK
  2. TOPOTECAN HYDROCHLORIDE [Suspect]
     Active Substance: TOPOTECAN HYDROCHLORIDE
     Indication: Chemotherapy
     Dosage: UNK
     Route: 037
  3. CARBOPLATIN [Suspect]
     Active Substance: CARBOPLATIN
     Indication: Chemotherapy
     Dosage: HIGH DOSE
  4. THIOTEPA [Suspect]
     Active Substance: THIOTEPA
     Indication: Chemotherapy
     Dosage: HIGH DOSE
  5. TRETINOIN [Suspect]
     Active Substance: TRETINOIN
     Indication: Chemotherapy
     Dosage: UNK

REACTIONS (5)
  - Coma [Recovered/Resolved]
  - Neurological decompensation [Recovered/Resolved]
  - Hypotonia [Recovered/Resolved]
  - Off label use [Unknown]
  - Off label use [Unknown]
